FAERS Safety Report 4423666-9 (Version None)
Quarter: 2004Q3

REPORT INFORMATION
  Report Type: 
  Country: None (occurrence: None)
  Receive Date: 20040806
  Receipt Date: 20040727
  Transmission Date: 20050211
  Serious: No
  Sender: FDA-Public Use
  Company Number: 04H-153-0268404-00

PATIENT
  Sex: 0

DRUGS (3)
  1. LEUCOVORIN CALCIUM [Suspect]
     Indication: CHEMOTHERAPY
     Dosage: 150MG/M2 FOR 46 HOURS EVERY 2  WEEKS INTRAVENOUS
     Route: 042
  2. OXALIPLATIN [Suspect]
     Indication: CHEMOTHERAPY
     Dosage: 85MG/M2 DAY 1 EVERY 2 WEEKS,  INTRAVENOUS
     Route: 042
  3. FLUOROURACIL [Suspect]
     Indication: CHEMOTHERAPY
     Dosage: 400MG/M2DAY 1 EVERY 2 WEEKS ,  INTRAVENOUS BOLUS; 30000MG/M2 FOR 46 HOURS EVERY 2 WEEKS INTRAVENOUS
     Route: 042

REACTIONS (2)
  - INFECTION [None]
  - PYREXIA [None]
